FAERS Safety Report 13069667 (Version 1)
Quarter: 2016Q4

REPORT INFORMATION
  Report Type: Report from Study
  Country: US (occurrence: US)
  Receive Date: 20161228
  Receipt Date: 20161228
  Transmission Date: 20170207
  Serious: Yes (Other)
  Sender: FDA-Public Use
  Company Number: US-TAKEDA-2016TUS022985

PATIENT
  Age: 61 Year
  Sex: Female
  Weight: 56.24 kg

DRUGS (2)
  1. VEDOLIZUMAB [Suspect]
     Active Substance: VEDOLIZUMAB
     Indication: CROHN^S DISEASE
     Dosage: 300 MG, UNK
     Route: 042
     Dates: start: 2014, end: 2016
  2. IMURAN [Concomitant]
     Active Substance: AZATHIOPRINE
     Indication: CROHN^S DISEASE
     Dosage: 200 MG, QD
     Route: 048
     Dates: start: 201606

REACTIONS (2)
  - Obstruction [Unknown]
  - Fistula [Unknown]

NARRATIVE: CASE EVENT DATE: 201606
